FAERS Safety Report 18117839 (Version 3)
Quarter: 2020Q3

REPORT INFORMATION
  Report Type: Spontaneous
  Country: JP (occurrence: JP)
  Receive Date: 20200806
  Receipt Date: 20200831
  Transmission Date: 20201103
  Serious: Yes (Other)
  Sender: FDA-Public Use
  Company Number: JP-BEH-2020120747

PATIENT
  Age: 15 Year
  Sex: Male
  Weight: 62 kg

DRUGS (4)
  1. IDELVION [Suspect]
     Active Substance: COAGULATION FACTOR IX RECOMBINANT HUMAN
     Indication: TRAUMATIC HAEMORRHAGE
     Dosage: 3000 INTERNATIONAL UNIT, QW
     Route: 042
     Dates: start: 20180601
  2. IDELVION [Suspect]
     Active Substance: COAGULATION FACTOR IX RECOMBINANT HUMAN
     Indication: TRAUMATIC HAEMORRHAGE
     Dosage: 3000 INTERNATIONAL UNIT, QW
     Route: 042
     Dates: start: 20180601
  3. IDELVION [Suspect]
     Active Substance: COAGULATION FACTOR IX RECOMBINANT HUMAN
     Indication: PROPHYLAXIS
     Dosage: 2000 INTERNATIONAL UNIT, QW
     Route: 042
     Dates: start: 20180325
  4. IDELVION [Suspect]
     Active Substance: COAGULATION FACTOR IX RECOMBINANT HUMAN
     Indication: PROPHYLAXIS
     Dosage: 2000 INTERNATIONAL UNIT, QW
     Route: 042
     Dates: start: 20180325

REACTIONS (1)
  - Traumatic haemorrhage [Unknown]

NARRATIVE: CASE EVENT DATE: 20180328
